FAERS Safety Report 18548950 (Version 3)
Quarter: 2020Q4

REPORT INFORMATION
  Report Type: Spontaneous
  Country: TW (occurrence: TW)
  Receive Date: 20201126
  Receipt Date: 20201231
  Transmission Date: 20210114
  Serious: Yes (Hospitalization, Other)
  Sender: FDA-Public Use
  Company Number: TW-MACLEODS PHARMACEUTICALS US LTD-MAC2020029190

PATIENT

DRUGS (3)
  1. HYDROXYCHLOROQUINE [Suspect]
     Active Substance: HYDROXYCHLOROQUINE
     Indication: DRUG REACTION WITH EOSINOPHILIA AND SYSTEMIC SYMPTOMS
     Dosage: UNK
     Route: 065
  2. CELECOXIB. [Suspect]
     Active Substance: CELECOXIB
     Indication: ARTHRALGIA
     Dosage: UNK
     Route: 065
  3. SULFASALAZINE. [Suspect]
     Active Substance: SULFASALAZINE
     Indication: ARTHRALGIA
     Dosage: UNK
     Route: 065

REACTIONS (10)
  - Hepatic function abnormal [Unknown]
  - Lymphocytosis [Unknown]
  - Cytomegalovirus infection reactivation [Unknown]
  - Drug reaction with eosinophilia and systemic symptoms [Recovered/Resolved]
  - Lymphadenopathy [Unknown]
  - Vitiligo [Recovering/Resolving]
  - Leukocytosis [Unknown]
  - Eosinophilia [Unknown]
  - Delirium [Unknown]
  - Human herpesvirus 6 infection reactivation [Unknown]
